FAERS Safety Report 5066433-8 (Version None)
Quarter: 2006Q3

REPORT INFORMATION
  Report Type: 
  Country: None (occurrence: None)
  Receive Date: 20060727
  Receipt Date: 20060727
  Transmission Date: 20061208
  Serious: Yes (Other)
  Sender: FDA-Public Use
  Company Number: None

PATIENT
  Sex: Male
  Weight: 149.687 kg

DRUGS (2)
  1. COPPERTONE LOTION /(AVOBENZONE)SCHERING- PLOUGH HEALTHCARE PRODUCT [Suspect]
     Indication: PROPHYLAXIS
     Dates: start: 20060625, end: 20060626
  2. COPPERTONE LOTION /(AVOBENZONE)SCHERING- PLOUGH HEALTHCARE PRODUCT [Suspect]
     Indication: SUNBURN
     Dates: start: 20060625, end: 20060626

REACTIONS (1)
  - BURNING SENSATION [None]
